FAERS Safety Report 8139561-8 (Version None)
Quarter: 2012Q1

REPORT INFORMATION
  Report Type: 
  Country: None (occurrence: None)
  Receive Date: 20120215
  Receipt Date: 20120202
  Transmission Date: 20120608
  Serious: Yes (Other)
  Sender: FDA-Public Use
  Company Number: CHPA2012US002605

PATIENT
  Sex: Female

DRUGS (2)
  1. EXCEDRIN (MIGRAINE) [Suspect]
     Indication: MIGRAINE
     Dosage: 2 DF, ABOUT 6 DAILY
     Route: 048
     Dates: start: 20090101
  2. EXCEDRIN EXTRA STRENGTH TABLETS [Suspect]
     Indication: MIGRAINE
     Dosage: 2 DF, ABOUT A TOTAL OF 6 DAILY
     Route: 048
     Dates: start: 20090101

REACTIONS (4)
  - NASAL ODOUR [None]
  - PITUITARY TUMOUR [None]
  - RHINORRHOEA [None]
  - DYSGEUSIA [None]
